FAERS Safety Report 9201827 (Version 2)
Quarter: 2013Q3

REPORT INFORMATION
  Report Type: Spontaneous
  Country: JP (occurrence: JP)
  Receive Date: 20130401
  Receipt Date: 20130828
  Transmission Date: 20140515
  Serious: No
  Sender: FDA-Public Use
  Company Number: JP-ASTRAZENECA-2013SE20676

PATIENT
  Age: 1008 Month
  Sex: Male
  Weight: 53.4 kg

DRUGS (17)
  1. SEROQUEL [Suspect]
     Indication: SCHIZOPHRENIA
     Route: 048
     Dates: end: 20130607
  2. CELECOX [Suspect]
     Indication: LUMBAR VERTEBRAL FRACTURE
     Route: 048
     Dates: start: 20130306, end: 20130318
  3. ARICEPT [Concomitant]
     Indication: DEMENTIA ALZHEIMER^S TYPE
     Route: 048
     Dates: end: 20130607
  4. AKINETON [Concomitant]
     Indication: PARKINSONISM
     Route: 048
     Dates: end: 20130607
  5. RISPERIDAL [Concomitant]
     Indication: SCHIZOPHRENIA
     Route: 048
     Dates: end: 20130607
  6. DIOVAN [Concomitant]
     Indication: HYPERTENSION
     Dates: end: 20130607
  7. WARFARIN [Concomitant]
     Indication: CEREBRAL INFARCTION
     Route: 048
  8. MAGNESIUM OXIDE [Concomitant]
     Indication: CONSTIPATION
     Route: 048
  9. ONON [Concomitant]
     Indication: ASTHMA
     Route: 048
  10. FEBURIC [Concomitant]
     Indication: HYPERURICAEMIA
  11. MENESIT [Concomitant]
     Indication: PARKINSONISM
     Dates: end: 20130607
  12. ALLEGRA [Concomitant]
     Indication: PRURIGO
     Dates: start: 20130308
  13. TAVEGYL [Concomitant]
     Indication: PRURIGO
     Dates: start: 20130311
  14. DERMOVATE [Concomitant]
     Indication: PRURIGO
  15. MYSLEE [Concomitant]
     Indication: INSOMNIA
     Dates: start: 20130307, end: 20130317
  16. THEODUR [Concomitant]
     Indication: ASTHMA
  17. CEFOCEF [Concomitant]
     Indication: PNEUMONIA ASPIRATION
     Dates: start: 20130306, end: 20130314

REACTIONS (2)
  - Hepatic function abnormal [Recovering/Resolving]
  - Intentional drug misuse [Unknown]
